FAERS Safety Report 9277030 (Version 1)
Quarter: 2013Q2

REPORT INFORMATION
  Report Type: Spontaneous
  Country: CA (occurrence: None)
  Receive Date: 20130501
  Receipt Date: 20130501
  Transmission Date: 20140414
  Serious: Yes (Hospitalization)
  Sender: FDA-Public Use
  Company Number: 2013P1004931

PATIENT
  Age: 24 Year
  Sex: Male

DRUGS (3)
  1. AMPHETAMINE [Suspect]
     Indication: DRUG ABUSE
  2. RISPERIDONE [Suspect]
     Route: 048
  3. RISPERIDONE [Suspect]
     Indication: AGITATION
     Route: 048

REACTIONS (3)
  - Dystonia [None]
  - Dysphagia [None]
  - Tongue disorder [None]
